FAERS Safety Report 12001269 (Version 1)
Quarter: 2016Q1

REPORT INFORMATION
  Report Type: Spontaneous
  Country: US (occurrence: US)
  Receive Date: 20160204
  Receipt Date: 20160204
  Transmission Date: 20160526
  Serious: Yes (Other)
  Sender: FDA-Public Use
  Company Number: US-CELGENE-USA-2016015058

PATIENT
  Sex: Male

DRUGS (1)
  1. OTEZLA [Suspect]
     Active Substance: APREMILAST
     Indication: LYMPHATIC DISORDER
     Dosage: 60 MILLIGRAM
     Route: 048

REACTIONS (2)
  - Diabetes mellitus [Unknown]
  - Immunodeficiency common variable [Unknown]
